FAERS Safety Report 7283860-9 (Version None)
Quarter: 2011Q1

REPORT INFORMATION
  Report Type: 
  Country: None (occurrence: None)
  Receive Date: 20110126
  Receipt Date: 20101231
  Transmission Date: 20110831
  Serious: Yes (Death)
  Sender: FDA-Public Use
  Company Number: AUR-APL-2011-00134

PATIENT
  Age: 46 Year
  Sex: Female

DRUGS (2)
  1. METFORMIN [Suspect]
     Dosage: ORAL
     Route: 048
  2. ETHANOL [Suspect]
     Dosage: ORAL
     Route: 048

REACTIONS (1)
  - DEATH [None]
